FAERS Safety Report 5727197-5 (Version None)
Quarter: 2008Q2

REPORT INFORMATION
  Report Type: 
  Country: None (occurrence: None)
  Receive Date: 20080505
  Receipt Date: 20080430
  Transmission Date: 20081010
  Serious: Yes (Life-Threatening, Hospitalization)
  Sender: FDA-Public Use
  Company Number: PHHO2008DE01552

PATIENT
  Age: 49 Year
  Sex: Female

DRUGS (8)
  1. ABF656+RIBAVIRIN VS PEGASYS+RIBAVIRIN [Suspect]
     Indication: HEPATITIS C
     Dosage: 180 UG, QW
     Route: 058
     Dates: start: 20070803, end: 20080111
  2. ABF656+RIBAVIRIN VS PEGASYS+RIBAVIRIN [Suspect]
     Dosage: UNK, UNK
     Route: 048
     Dates: start: 20070803, end: 20080114
  3. POTASSIUM CHLORIDE [Concomitant]
     Indication: HYPOKALAEMIA
  4. BACLOFEN [Suspect]
  5. TIZANIDINE HCL [Concomitant]
     Indication: MUSCLE SPASTICITY
  6. IBUPROFEN TABLETS [Concomitant]
     Indication: HEADACHE
  7. ZOLPIDEM [Suspect]
     Indication: SLEEP DISORDER
  8. ALCOHOL [Suspect]

REACTIONS (3)
  - INCORRECT DOSE ADMINISTERED [None]
  - LOSS OF CONSCIOUSNESS [None]
  - SUICIDE ATTEMPT [None]
